FAERS Safety Report 7277654-8 (Version None)
Quarter: 2011Q1

REPORT INFORMATION
  Report Type: 
  Country: None (occurrence: None)
  Receive Date: 20110202
  Receipt Date: 20110202
  Transmission Date: 20110831
  Serious: Yes (Hospitalization)
  Sender: FDA-Public Use
  Company Number: None

PATIENT
  Age: 74 Year
  Sex: Female
  Weight: 66.6788 kg

DRUGS (16)
  1. PRADAXA [Suspect]
     Indication: ATRIAL FIBRILLATION
     Dosage: 150MG TWICE DAILY PO
     Route: 048
     Dates: start: 20110126, end: 20110127
  2. FAMOTIDINE [Concomitant]
  3. POTASSIUM [Concomitant]
  4. SIMVASTATIN [Concomitant]
  5. ASA [Concomitant]
  6. STOOL SOFTENER [Concomitant]
  7. LOVAZA [Concomitant]
  8. VITAMIN D [Concomitant]
  9. ALPRAZOLAM [Concomitant]
  10. VITAMIN B-12 [Concomitant]
  11. ROXICET [Concomitant]
  12. FOLIC ACID [Concomitant]
  13. PLAVIX [Concomitant]
  14. METOPROLOL [Concomitant]
  15. AMIODARONE [Concomitant]
  16. FLUOXETINE [Concomitant]

REACTIONS (1)
  - GASTROINTESTINAL HAEMORRHAGE [None]
